FAERS Safety Report 9462080 (Version 2)
Quarter: 2013Q4

REPORT INFORMATION
  Report Type: Spontaneous
  Country: US (occurrence: US)
  Receive Date: 20130816
  Receipt Date: 20131107
  Transmission Date: 20140711
  Serious: No
  Sender: FDA-Public Use
  Company Number: US-B.I. PHARMACEUTICALS,INC./RIDGEFIELD-2013-BI-24471BP

PATIENT
  Age: 70 Year
  Sex: Female
  Weight: 73 kg

DRUGS (5)
  1. PRADAXA [Suspect]
     Indication: ATRIAL FIBRILLATION
     Dosage: 300 MG
     Route: 048
     Dates: start: 201302
  2. PRADAXA [Suspect]
     Indication: CEREBROVASCULAR ACCIDENT PROPHYLAXIS
  3. CELEBREX [Concomitant]
     Indication: ARTHRITIS
     Dates: start: 201112
  4. CYCLOBENZAPRINE [Concomitant]
     Indication: MYALGIA
     Dates: start: 201310
  5. VOLTAREN [Concomitant]
     Indication: MYALGIA
     Dates: start: 201308

REACTIONS (1)
  - Arthralgia [Recovered/Resolved]
